FAERS Safety Report 6310461-9 (Version None)
Quarter: 2009Q3

REPORT INFORMATION
  Report Type: 
  Country: None (occurrence: None)
  Receive Date: 20090814
  Receipt Date: 20090805
  Transmission Date: 20100115
  Serious: Yes (Hospitalization, Disabling, Other)
  Sender: FDA-Public Use
  Company Number: US-ABBOTT-09P-163-0562569-01

PATIENT
  Sex: Female
  Weight: 57.204 kg

DRUGS (48)
  1. HUMIRA [Suspect]
     Indication: CROHN'S DISEASE
     Route: 058
     Dates: start: 20080818, end: 20090109
  2. ENTOCORT EC [Concomitant]
     Indication: CROHN'S DISEASE
     Dates: start: 20080704, end: 20090301
  3. ENTOCORT EC [Concomitant]
     Indication: ABDOMINAL PAIN
  4. MS CONTIN [Concomitant]
     Indication: ABDOMINAL PAIN
     Dates: start: 20080902, end: 20090226
  5. MS CONTIN [Concomitant]
     Dosage: 5 OXYCODONE/ 325MG ACETAMINOPHEN
     Dates: start: 20071113, end: 20081030
  6. MS CONTIN [Concomitant]
     Dosage: 5 OXYCODONE/ 325MG ACETAMINOPHEN
     Dates: start: 20081031, end: 20081124
  7. DILAUDID [Concomitant]
     Indication: ABDOMINAL PAIN
     Dates: start: 20080610, end: 20090115
  8. DILAUDID [Concomitant]
     Dosage: 8-12 MG
     Dates: start: 20060804, end: 20080609
  9. BACLOFEN [Concomitant]
     Indication: MUSCLE RELAXANT THERAPY
     Dates: start: 20070430, end: 20090226
  10. BACLOFEN [Concomitant]
     Indication: ARTHRITIS
  11. BACLOFEN [Concomitant]
     Indication: ABDOMINAL PAIN
  12. CYMBALTA [Concomitant]
     Indication: ANXIETY
     Dates: start: 20070329, end: 20070927
  13. CYMBALTA [Concomitant]
     Indication: DEPRESSION
     Dates: start: 20070928, end: 20080924
  14. CYMBALTA [Concomitant]
     Indication: PAIN
     Dosage: 30 MG Q AM, 60 MG QPM
     Dates: start: 20080925, end: 20090226
  15. ZANAFLEX [Concomitant]
     Indication: MUSCLE RELAXANT THERAPY
     Dates: start: 20070802, end: 20080924
  16. ZANAFLEX [Concomitant]
     Indication: SLEEP DISORDER THERAPY
     Dates: start: 20080925, end: 20081013
  17. ZANAFLEX [Concomitant]
     Indication: PAIN
     Dates: start: 20081014, end: 20081218
  18. ZANAFLEX [Concomitant]
     Dates: start: 20081222, end: 20090205
  19. ATIVAN [Concomitant]
     Indication: ANXIETY
     Dates: start: 20080704, end: 20080826
  20. ATIVAN [Concomitant]
     Indication: PAIN
     Dates: start: 20080827, end: 20090225
  21. ATIVAN [Concomitant]
     Indication: NAUSEA
  22. PROTONIX [Concomitant]
     Indication: HYPERCHLORHYDRIA
     Dates: start: 20080328
  23. PHENERGAN [Concomitant]
     Indication: NAUSEA
     Dates: start: 20071018, end: 20080813
  24. PHENERGAN [Concomitant]
     Indication: ANTIEMETIC SUPPORTIVE CARE
     Dates: start: 20080814, end: 20080819
  25. PHENERGAN [Concomitant]
     Dates: start: 20080820, end: 20090104
  26. PHENERGAN [Concomitant]
     Dates: start: 20050811, end: 20071017
  27. ZOFRAN ODT [Concomitant]
     Indication: NAUSEA
     Dates: start: 20070126, end: 20081218
  28. LIDOCAINE [Concomitant]
     Indication: ANALGESIA
     Route: 042
     Dates: start: 20080911
  29. PERCOCET [Concomitant]
     Indication: ABDOMINAL PAIN
     Dosage: 5 MG/ 325 MG
     Dates: start: 20071113, end: 20081031
  30. PERCOCET [Concomitant]
     Dosage: 10 MG / 325 MG
     Dates: start: 20081125, end: 20090122
  31. CYANOCOBALAMIN [Concomitant]
     Indication: ANAEMIA
     Route: 030
     Dates: start: 20080704, end: 20090428
  32. CYANOCOBALAMIN [Concomitant]
     Indication: VITAMIN B12 DEFICIENCY
  33. LO/OVRAL [Concomitant]
     Indication: CONTRACEPTION
     Dates: start: 20051007, end: 20090311
  34. SENNA [Concomitant]
     Indication: CONSTIPATION
     Dates: start: 20080704
  35. FERROUS GLUCONATE [Concomitant]
     Indication: ANAEMIA
     Route: 048
     Dates: start: 20080814
  36. MIRALAX [Concomitant]
     Indication: CONSTIPATION
     Dates: start: 20081222, end: 20090122
  37. PRILOSEC [Concomitant]
     Indication: GASTROOESOPHAGEAL REFLUX DISEASE
     Dates: start: 20080714, end: 20081222
  38. PRILOSEC [Concomitant]
     Indication: HYPERCHLORHYDRIA
  39. METHADONE [Concomitant]
     Indication: DRUG DETOXIFICATION
     Dates: start: 20080703, end: 20080828
  40. COMBIVENT [Concomitant]
     Indication: CHRONIC OBSTRUCTIVE PULMONARY DISEASE
     Dates: start: 20080217
  41. OXYCET [Concomitant]
     Indication: ABDOMINAL PAIN
     Dosage: 5 MG OXYCODONE/325 ACETAMINOPHEN
     Dates: start: 20081031, end: 20081124
  42. OXYCET [Concomitant]
     Dosage: 5 MG OXYCODONE/325 ACETAMINOPHEN
     Dates: start: 20071113, end: 20081030
  43. OXYCET [Concomitant]
     Dosage: 10/325 MG TAB
     Dates: start: 20081125, end: 20090122
  44. CELEBREX [Concomitant]
     Indication: DRUG USE FOR UNKNOWN INDICATION
     Dates: start: 20080807, end: 20090310
  45. REGLAN [Concomitant]
     Indication: NAUSEA
     Dates: start: 20080731, end: 20080902
  46. REGLAN [Concomitant]
     Indication: VOMITING
     Dates: start: 20081031, end: 20090115
  47. REGLAN [Concomitant]
     Dates: start: 20080610, end: 20080814
  48. REGLAN [Concomitant]
     Dates: start: 20080814, end: 20081031

REACTIONS (8)
  - ACUTE RESPIRATORY DISTRESS SYNDROME [None]
  - COELIAC ARTERY COMPRESSION SYNDROME [None]
  - CONSTIPATION [None]
  - DRUG DEPENDENCE [None]
  - DRUG WITHDRAWAL SYNDROME [None]
  - HEPATIC NECROSIS [None]
  - PNEUMONIA [None]
  - PULMONARY OEDEMA [None]
